FAERS Safety Report 18269786 (Version 3)
Quarter: 2022Q3

REPORT INFORMATION
  Report Type: Spontaneous
  Country: US (occurrence: US)
  Receive Date: 20200915
  Receipt Date: 20220909
  Transmission Date: 20221027
  Serious: Yes (Other)
  Sender: FDA-Public Use
  Company Number: US-SAARTEMIS-SAC202009140406

PATIENT
  Age: 53 Year
  Sex: Male

DRUGS (1)
  1. ZANTAC [Suspect]
     Active Substance: RANITIDINE HYDROCHLORIDE
     Indication: Dyspepsia
     Dosage: 150 MG, QW
     Dates: start: 200601, end: 201909

REACTIONS (4)
  - Gastrointestinal carcinoma [Unknown]
  - Small intestine carcinoma stage III [Unknown]
  - Haematological malignancy [Unknown]
  - Gastrointestinal stromal tumour [Unknown]

NARRATIVE: CASE EVENT DATE: 20120901
